FAERS Safety Report 15075444 (Version 2)
Quarter: 2023Q4

REPORT INFORMATION
  Report Type: Report from Study
  Country: US (occurrence: US)
  Receive Date: 20180627
  Receipt Date: 20231128
  Transmission Date: 20240110
  Serious: No
  Sender: FDA-Public Use
  Company Number: US-SAOL THERAPEUTICS-2017SAO01331

PATIENT
  Age: 63 Year
  Sex: Female

DRUGS (23)
  1. BACLOFEN [Suspect]
     Active Substance: BACLOFEN
     Indication: Spinal pain
     Dosage: 28.78 ?G, \DAY
     Route: 037
     Dates: start: 20170816
  2. BACLOFEN [Suspect]
     Active Substance: BACLOFEN
     Dosage: 42.95 ?G, \DAY, MAXIMUM DOSE
     Route: 037
     Dates: start: 20170816
  3. BACLOFEN [Suspect]
     Active Substance: BACLOFEN
     Dosage: 31.88 ?G, \DAY
     Route: 037
     Dates: start: 20170724, end: 20170810
  4. BACLOFEN [Suspect]
     Active Substance: BACLOFEN
     Dosage: 35.83 ?G, \DAY, MAX DOSE
     Route: 037
     Dates: start: 20170724, end: 20170810
  5. BACLOFEN [Suspect]
     Active Substance: BACLOFEN
     Dosage: 41.96 ?G, \DAY
     Route: 037
     Dates: start: 20180201
  6. BACLOFEN [Suspect]
     Active Substance: BACLOFEN
     Dosage: 67.88 ?G, \DAY, MAX DOSE
     Route: 037
     Dates: start: 20180201, end: 20180405
  7. BACLOFEN [Suspect]
     Active Substance: BACLOFEN
     Dosage: 61.40 ?G, \DAY, MAX DOSE
     Route: 037
     Dates: start: 20180405
  8. MORPHINE [Suspect]
     Active Substance: MORPHINE
     Indication: Spinal pain
     Dosage: 2.998 MG, \DAY
     Route: 037
     Dates: start: 20170816
  9. MORPHINE [Suspect]
     Active Substance: MORPHINE
     Dosage: 4.474 MG, \DAY, MAXIMUM DOSE
     Route: 037
     Dates: start: 20170816
  10. BUPIVACAINE [Suspect]
     Active Substance: BUPIVACAINE
     Dosage: 9.226 MG, \DAY
     Route: 037
     Dates: start: 20170810, end: 20170816
  11. DILAUDID [Suspect]
     Active Substance: HYDROMORPHONE HYDROCHLORIDE
     Dosage: 0.649 MG, \DAY
     Route: 037
     Dates: start: 20170810, end: 20170816
  12. BUPIVACAINE [Suspect]
     Active Substance: BUPIVACAINE
     Dosage: 4.796 MG, \DAY
     Route: 037
     Dates: start: 20170816
  13. BUPIVACAINE [Suspect]
     Active Substance: BUPIVACAINE
     Dosage: 7.159 MG, \DAY, MAXIMUM DOSE
     Route: 037
  14. BUPIVACAINE [Suspect]
     Active Substance: BUPIVACAINE
     Dosage: 6.994 MG, \DAY
     Route: 037
     Dates: start: 20180201
  15. BUPIVACAINE [Suspect]
     Active Substance: BUPIVACAINE
     Dosage: 11.314 MG, \DAY, MAX DOSE
     Route: 037
     Dates: start: 20180201, end: 20180405
  16. BUPIVACAINE [Suspect]
     Active Substance: BUPIVACAINE
     Dosage: 10.234 MG, \DAY, MAX DOSE
     Route: 037
     Dates: start: 20180405
  17. MORPHINE [Suspect]
     Active Substance: MORPHINE
     Dosage: 6.802 MG, \DAY
     Route: 037
     Dates: start: 20170724, end: 20170810
  18. MORPHINE [Suspect]
     Active Substance: MORPHINE
     Dosage: 7.643 MG, \DAY, MAX DOSE
     Route: 037
     Dates: start: 20170724, end: 20170810
  19. BUPIVACAINE [Suspect]
     Active Substance: BUPIVACAINE
     Dosage: 4.065 MG, \DAY
     Route: 037
     Dates: start: 20170724, end: 20170810
  20. BUPIVACAINE [Suspect]
     Active Substance: BUPIVACAINE
     Dosage: 4.568 MG, \DAY, MAX DOSE
     Dates: start: 20170724, end: 20170810
  21. MORPHINE [Suspect]
     Active Substance: MORPHINE
     Dosage: 3.497 MG, \DAY
     Route: 037
     Dates: start: 20180201
  22. MORPHINE [Suspect]
     Active Substance: MORPHINE
     Dosage: 5.657 MG, \DAY, MAX DPSE
     Route: 037
     Dates: start: 20180201, end: 20180405
  23. MORPHINE [Suspect]
     Active Substance: MORPHINE
     Dosage: 5.117 MG, \DAY, MAX DOSE
     Route: 037
     Dates: start: 20180405

REACTIONS (4)
  - Implant site pain [Not Recovered/Not Resolved]
  - Implant site warmth [Recovered/Resolved]
  - Device occlusion [Recovered/Resolved]
  - Device failure [Unknown]

NARRATIVE: CASE EVENT DATE: 20170724
